FAERS Safety Report 18435654 (Version 1)
Quarter: 2020Q4

REPORT INFORMATION
  Report Type: Spontaneous
  Country: US (occurrence: US)
  Receive Date: 20201028
  Receipt Date: 20201028
  Transmission Date: 20210114
  Serious: Yes (Hospitalization, Other)
  Sender: FDA-Public Use
  Company Number: US-PFIZER INC-2020370749

PATIENT
  Sex: Female

DRUGS (3)
  1. CYCLOPHOSPHAMIDE. [Concomitant]
     Active Substance: CYCLOPHOSPHAMIDE
     Indication: FIBROSARCOMA
     Dosage: 25 MG/KG, CYCLIC
  2. VINCRISTINE SULFATE. [Suspect]
     Active Substance: VINCRISTINE SULFATE
     Indication: FIBROSARCOMA
     Dosage: 0.05 MG/KG, CYCLIC
  3. DACTINOMYCIN [Concomitant]
     Active Substance: DACTINOMYCIN
     Indication: FIBROSARCOMA
     Dosage: 0.025 MG/KG, CYCLIC

REACTIONS (2)
  - Pneumatosis intestinalis [Recovered/Resolved]
  - Constipation [Recovered/Resolved]
